FAERS Safety Report 19489040 (Version 2)
Quarter: 2023Q4

REPORT INFORMATION
  Report Type: Spontaneous
  Country: NL (occurrence: NL)
  Receive Date: 20210703
  Receipt Date: 20231213
  Transmission Date: 20240109
  Serious: Yes (Other)
  Sender: FDA-Public Use
  Company Number: NL-LRB-00573861

PATIENT
  Age: 69 Year
  Sex: Female
  Weight: 76.6 kg

DRUGS (4)
  1. DICLOFENAC [Suspect]
     Active Substance: DICLOFENAC
     Indication: Product used for unknown indication
     Dosage: 50 MILLIGRAM 3 PER DAG 1 TABLET
     Route: 065
     Dates: start: 20210503
  2. PFIZER-BIONTECH COVID-19 VACCINE [Suspect]
     Active Substance: TOZINAMERAN
     Indication: COVID-19 immunisation
     Dosage: 1 DOSAGE FORM
     Route: 065
     Dates: start: 20210507
  3. PFIZER-BIONTECH COVID-19 VACCINE [Suspect]
     Active Substance: TOZINAMERAN
     Dosage: 1 DOSAGE FORM
     Route: 065
     Dates: start: 20210611
  4. COVID-19 VACCINE NOS [Suspect]
     Active Substance: COVID-19 VACCINE NOS
     Indication: COVID-19 immunisation
     Dosage: 1 DOSAGE FORM
     Route: 065
     Dates: start: 20210611

REACTIONS (23)
  - Arrhythmia [Recovered/Resolved]
  - Chest pain [Recovered/Resolved]
  - Malaise [Recovering/Resolving]
  - Fatigue [Recovered/Resolved]
  - Balance disorder [Recovering/Resolving]
  - Myalgia [Recovering/Resolving]
  - Paraesthesia oral [Recovering/Resolving]
  - Pain in extremity [Recovering/Resolving]
  - Confusional state [Recovering/Resolving]
  - Oxygen saturation decreased [Recovered/Resolved]
  - Peripheral coldness [Recovering/Resolving]
  - Dizziness [Recovering/Resolving]
  - Nausea [Recovered/Resolved]
  - Injection site swelling [Recovered/Resolved]
  - Blood pressure abnormal [Recovered/Resolved]
  - Injection site inflammation [Recovered/Resolved]
  - Injection site warmth [Recovered/Resolved]
  - Muscular weakness [Recovered/Resolved]
  - Condition aggravated [Recovering/Resolving]
  - Muscle spasms [Recovering/Resolving]
  - Arthralgia [Recovering/Resolving]
  - Paraesthesia [Recovering/Resolving]
  - Headache [Recovered/Resolved]

NARRATIVE: CASE EVENT DATE: 20210507
